FAERS Safety Report 24075441 (Version 1)
Quarter: 2024Q3

REPORT INFORMATION
  Report Type: Spontaneous
  Country: US (occurrence: US)
  Receive Date: 20240710
  Receipt Date: 20240710
  Transmission Date: 20241017
  Serious: Yes (Hospitalization, Other)
  Sender: TELIX PHARMACEUTICALS
  Company Number: US-TLX-2024000143

PATIENT
  Age: 67 Year
  Sex: Male
  Weight: 102.05 kg

DRUGS (1)
  1. ILLUCCIX [Suspect]
     Active Substance: GALLIUM GA-68 GOZETOTIDE
     Indication: Imaging procedure
     Dosage: OTHER QUANTITY: 1 INJECTION, OTHER FREQUENCY: 1?DISPENSED DOSE: 5.27MCI IN 4.4ML
     Route: 040
     Dates: start: 20240118, end: 20240118

REACTIONS (4)
  - Syncope [Recovered/Resolved]
  - Cardio-respiratory arrest [Unknown]
  - Seizure [Unknown]
  - Blood glucose decreased [Unknown]

NARRATIVE: CASE EVENT DATE: 20240118
